FAERS Safety Report 14754241 (Version 3)
Quarter: 2018Q3

REPORT INFORMATION
  Report Type: Spontaneous
  Country: US (occurrence: US)
  Receive Date: 20180412
  Receipt Date: 20180823
  Transmission Date: 20181010
  Serious: Yes (Life-Threatening, Hospitalization)
  Sender: FDA-Public Use
  Company Number: US-VIFOR (INTERNATIONAL) INC.-VIT-2018-03414

PATIENT
  Age: 70 Year
  Sex: Female
  Weight: 78.9 kg

DRUGS (12)
  1. MIRCERA [Suspect]
     Active Substance: METHOXY POLYETHYLENE GLYCOL-EPOETIN BETA
     Indication: NEPHROGENIC ANAEMIA
     Route: 040
     Dates: start: 20180314
  2. TYLENOL [Concomitant]
     Active Substance: ACETAMINOPHEN
  3. TORASEMIDE [Concomitant]
     Active Substance: TORSEMIDE
  4. ISOSORBIDE DINITRATE~~HYDRALAZINE HYDROCHLORIDE [Concomitant]
     Dosage: ISOSORBIDE DINITRATE 20 MG AND HYDRALAZINE 37.5 MG
  5. RENAGEL [Concomitant]
     Active Substance: SEVELAMER HYDROCHLORIDE
     Dosage: WITH MEALS
  6. MIRCERA [Suspect]
     Active Substance: METHOXY POLYETHYLENE GLYCOL-EPOETIN BETA
     Route: 040
     Dates: start: 20180328
  7. CULTURELLE [Concomitant]
     Active Substance: LACTOBACILLUS RHAMNOSUS
     Route: 048
  8. SODIUM BICARBONATE. [Concomitant]
     Active Substance: SODIUM BICARBONATE
  9. NEPRO [Concomitant]
     Active Substance: DIETARY SUPPLEMENT
  10. MIRCERA [Suspect]
     Active Substance: METHOXY POLYETHYLENE GLYCOL-EPOETIN BETA
     Route: 040
     Dates: start: 20180228
  11. DOCUSATE~~SENNA ALEXANDRINA [Concomitant]
     Route: 048
  12. AMLODIPINE [Concomitant]
     Active Substance: AMLODIPINE BESYLATE
     Route: 048

REACTIONS (10)
  - Tachycardia [Recovered/Resolved]
  - Tongue biting [Recovered/Resolved]
  - Syncope [Recovered/Resolved]
  - Drug hypersensitivity [Recovered/Resolved]
  - Unresponsive to stimuli [Recovered/Resolved]
  - Moaning [Recovered/Resolved]
  - Loss of consciousness [Recovered/Resolved]
  - Seizure like phenomena [Recovered/Resolved]
  - Blood pressure increased [Recovered/Resolved]
  - Cyanosis [Recovered/Resolved]

NARRATIVE: CASE EVENT DATE: 20180328
